FAERS Safety Report 14655657 (Version 1)
Quarter: 2018Q1

REPORT INFORMATION
  Report Type: Spontaneous
  Country: US (occurrence: US)
  Receive Date: 20180319
  Receipt Date: 20180319
  Transmission Date: 20180509
  Serious: Yes (Hospitalization, Other)
  Sender: FDA-Public Use
  Company Number: US-TEVA-2018-US-868958

PATIENT
  Sex: Male

DRUGS (1)
  1. PROAIR HFA [Suspect]
     Active Substance: ALBUTEROL SULFATE
     Dates: start: 2014

REACTIONS (3)
  - Dyspnoea [Unknown]
  - Pharyngeal oedema [Unknown]
  - Asthma [Unknown]

NARRATIVE: CASE EVENT DATE: 2014
